FAERS Safety Report 9166908 (Version 2)
Quarter: 2013Q1

REPORT INFORMATION
  Report Type: Spontaneous
  Country: RU (occurrence: RU)
  Receive Date: 20130318
  Receipt Date: 20130325
  Transmission Date: 20140127
  Serious: Yes (Other)
  Sender: FDA-Public Use
  Company Number: PHHY2013RU024492

PATIENT
  Age: 82 Year
  Sex: Male

DRUGS (3)
  1. AMOKSIKLAV [Suspect]
     Indication: RESPIRATORY DISORDER
     Dosage: 625 MG, BID
     Route: 048
     Dates: start: 20130306, end: 20130311
  2. LINEX [Concomitant]
  3. GRAMMIDIN [Concomitant]
     Route: 048

REACTIONS (5)
  - Melaena [Recovered/Resolved]
  - Asthenia [Not Recovered/Not Resolved]
  - Decreased appetite [Recovered/Resolved]
  - Faeces discoloured [Recovered/Resolved]
  - Diarrhoea [Recovered/Resolved]
